FAERS Safety Report 18473216 (Version 2)
Quarter: 2020Q4

REPORT INFORMATION
  Report Type: Spontaneous
  Country: DE (occurrence: DE)
  Receive Date: 20201106
  Receipt Date: 20201207
  Transmission Date: 20210114
  Serious: Yes (Disabling)
  Sender: FDA-Public Use
  Company Number: DE-SA-2020SA312207

PATIENT

DRUGS (1)
  1. DUPIXENT [Suspect]
     Active Substance: DUPILUMAB
     Indication: DERMATITIS ATOPIC
     Dosage: 300 MG, QOW
     Route: 058
     Dates: start: 20201007, end: 20201021

REACTIONS (5)
  - Eyelid oedema [Recovered/Resolved]
  - Eye pruritus [Unknown]
  - Swelling of eyelid [Unknown]
  - Dry eye [Unknown]
  - Impaired work ability [Unknown]

NARRATIVE: CASE EVENT DATE: 2020
